FAERS Safety Report 4261996-4 (Version None)
Quarter: 2004Q1

REPORT INFORMATION
  Report Type: 
  Country: None (occurrence: None)
  Receive Date: 20040102
  Receipt Date: 20031223
  Transmission Date: 20041129
  Serious: Yes (Other)
  Sender: FDA-Public Use
  Company Number: 200323090GDDC

PATIENT
  Age: 51 Year
  Sex: Male

DRUGS (9)
  1. ENOXAPARIN SODIUM [Suspect]
     Indication: THROMBOSIS PROPHYLAXIS
     Route: 058
     Dates: start: 20031202, end: 20031202
  2. CLOPIDOGREL [Suspect]
     Indication: THROMBOSIS PROPHYLAXIS
     Route: 048
     Dates: start: 20031202, end: 20031202
  3. GLYCERYL TRINITRATE [Concomitant]
     Indication: ANGINA PECTORIS
     Route: 002
     Dates: start: 20031202
  4. ASPIRIN [Concomitant]
     Indication: ANGINA PECTORIS
     Route: 048
     Dates: start: 20031202
  5. METFORMIN HCL [Concomitant]
     Indication: DIABETES MELLITUS
     Route: 048
  6. PIRITON [Concomitant]
     Indication: PRURITUS
     Route: 048
  7. PIRITON [Concomitant]
     Indication: PSORIASIS
     Route: 048
  8. ATENOLOL [Concomitant]
  9. AMLODIPINE BESYLATE [Concomitant]

REACTIONS (4)
  - CHILLS [None]
  - OBSTRUCTIVE AIRWAYS DISORDER [None]
  - PARAESTHESIA [None]
  - PRURITUS GENERALISED [None]
